FAERS Safety Report 5603324-5 (Version None)
Quarter: 2008Q1

REPORT INFORMATION
  Report Type: 
  Country: None (occurrence: None)
  Receive Date: 20080122
  Receipt Date: 20071219
  Transmission Date: 20080703
  Serious: Yes (Other)
  Sender: FDA-Public Use
  Company Number: 2007VX002996

PATIENT
  Sex: Female

DRUGS (1)
  1. EFUDEX [Suspect]
     Indication: ACTINIC KERATOSIS

REACTIONS (1)
  - NEUROPATHY PERIPHERAL [None]
